FAERS Safety Report 4344812-1 (Version None)
Quarter: 2004Q2

REPORT INFORMATION
  Report Type: 
  Country: None (occurrence: None)
  Receive Date: 20040420
  Receipt Date: 20040408
  Transmission Date: 20050107
  Serious: Yes (Hospitalization)
  Sender: FDA-Public Use
  Company Number: US-JNJFOC-20040401719

PATIENT
  Age: 56 Year
  Sex: Male
  Weight: 115.2136 kg

DRUGS (9)
  1. INFLIXIMAB (INFLIXIMAB, RECOMBINANT) LYOPHILIZED POWDER [Suspect]
     Indication: RHEUMATOID ARTHRITIS
     Dosage: 10/500 2-4 TABS DAILY
     Dates: start: 20011019
  2. HYDROCODONE (HYDROCODONE) [Concomitant]
  3. COUMADIN [Concomitant]
  4. FOLEX (PREGAMAL) [Concomitant]
  5. CLARITIN [Concomitant]
  6. AMARYL [Concomitant]
  7. ALPRAZOLAM [Concomitant]
  8. METHOTREXATE [Concomitant]
  9. ZYRTEC [Concomitant]

REACTIONS (1)
  - GALLBLADDER OPERATION [None]
